FAERS Safety Report 4998846-4 (Version None)
Quarter: 2006Q2

REPORT INFORMATION
  Report Type: 
  Country: None (occurrence: None)
  Receive Date: 20060510
  Receipt Date: 20050218
  Transmission Date: 20061013
  Serious: Yes (Hospitalization)
  Sender: FDA-Public Use
  Company Number: US-MERCK-0502USA02848

PATIENT
  Age: 60 Year
  Sex: Female
  Weight: 109 kg

DRUGS (7)
  1. VIOXX [Suspect]
     Indication: ARTHRITIS
     Route: 048
     Dates: start: 20000101, end: 20000815
  2. PREMARIN [Concomitant]
     Route: 065
  3. FLEXERIL [Concomitant]
     Route: 065
  4. DARVOCET [Concomitant]
     Route: 065
  5. LIPITOR [Concomitant]
     Route: 065
  6. PRILOSEC [Concomitant]
     Route: 048
  7. NITROSTAT [Concomitant]
     Route: 065

REACTIONS (6)
  - ANGINA PECTORIS [None]
  - BLOOD PRESSURE INCREASED [None]
  - CORONARY ARTERY DISEASE [None]
  - CORONARY ARTERY STENOSIS [None]
  - FLUID RETENTION [None]
  - MYOCARDIAL ISCHAEMIA [None]
